FAERS Safety Report 9335189 (Version 1)
Quarter: 2013Q2

REPORT INFORMATION
  Report Type: Spontaneous
  Country: GB (occurrence: GB)
  Receive Date: 20130606
  Receipt Date: 20130606
  Transmission Date: 20140414
  Serious: Yes (Hospitalization)
  Sender: FDA-Public Use
  Company Number: GB-WATSON-2013-10522

PATIENT
  Age: 73 Year
  Sex: Female

DRUGS (1)
  1. NABUMETONE (UNKNOWN) [Suspect]
     Indication: RHEUMATOID ARTHRITIS
     Dosage: 500 MG, BID
     Route: 048
     Dates: start: 20031107

REACTIONS (2)
  - Chronic obstructive pulmonary disease [Recovered/Resolved]
  - Haemophilus test positive [None]
